FAERS Safety Report 25407823 (Version 2)
Quarter: 2025Q2

REPORT INFORMATION
  Report Type: Spontaneous
  Country: BR (occurrence: BR)
  Receive Date: 20250606
  Receipt Date: 20250621
  Transmission Date: 20250716
  Serious: Yes (Other)
  Sender: ASTELLAS
  Company Number: BR-PFIZER INC-PV202500064790

PATIENT
  Age: 73 Year

DRUGS (5)
  1. PADCEV [Suspect]
     Active Substance: ENFORTUMAB VEDOTIN-EJFV
     Indication: Transitional cell cancer of the renal pelvis and ureter
     Route: 065
     Dates: start: 20240426
  2. PADCEV [Suspect]
     Active Substance: ENFORTUMAB VEDOTIN-EJFV
     Indication: Metastases to lymph nodes
     Route: 065
     Dates: start: 202407
  3. PADCEV [Suspect]
     Active Substance: ENFORTUMAB VEDOTIN-EJFV
     Indication: Malignant neoplasm progression
     Route: 065
     Dates: start: 202502, end: 20250220
  4. ELIQUIS [Concomitant]
     Active Substance: APIXABAN
     Indication: Anticoagulant therapy
     Route: 048
  5. CARBOPLATIN [Concomitant]
     Active Substance: CARBOPLATIN
     Indication: Transitional cell cancer of renal pelvis and ureter metastatic
     Route: 048

REACTIONS (13)
  - Panniculitis [Unknown]
  - Transitional cell cancer of the renal pelvis and ureter [Not Recovered/Not Resolved]
  - Malignant neoplasm progression [Not Recovered/Not Resolved]
  - Metastases to lymph nodes [Not Recovered/Not Resolved]
  - Neuropathy peripheral [Not Recovered/Not Resolved]
  - Peripheral sensorimotor neuropathy [Not Recovered/Not Resolved]
  - Neutropenia [Unknown]
  - Thrombocytopenia [Unknown]
  - Decreased appetite [Unknown]
  - Dysgeusia [Unknown]
  - Lacrimation increased [Unknown]
  - Skin toxicity [Unknown]
  - Dry skin [Unknown]

NARRATIVE: CASE EVENT DATE: 20241024
